FAERS Safety Report 8942855 (Version 2)
Quarter: 2013Q1

REPORT INFORMATION
  Report Type: Spontaneous
  Country: US (occurrence: US)
  Receive Date: 20121204
  Receipt Date: 20130125
  Transmission Date: 20140127
  Serious: Yes (Death, Hospitalization, Other)
  Sender: FDA-Public Use
  Company Number: US-AMGEN-USASP2012077166

PATIENT
  Age: 89 Year
  Sex: Male

DRUGS (1)
  1. XGEVA [Suspect]
     Indication: RENAL CELL CARCINOMA STAGE IV
     Dosage: UNK
     Dates: start: 20121031

REACTIONS (17)
  - Death [Fatal]
  - Jaundice [Unknown]
  - Dyskinesia [Unknown]
  - Hand deformity [Unknown]
  - Hypokinesia [Unknown]
  - Rash [Unknown]
  - Oral mucosal blistering [Unknown]
  - Tooth loss [Unknown]
  - Pain in jaw [Unknown]
  - Musculoskeletal pain [Unknown]
  - Feeling abnormal [Unknown]
  - Mouth ulceration [Unknown]
  - Genital rash [Unknown]
  - Fall [Unknown]
  - General physical health deterioration [Unknown]
  - Aphagia [Unknown]
  - Asthenia [Unknown]
